FAERS Safety Report 5241130-4 (Version None)
Quarter: 2007Q1

REPORT INFORMATION
  Report Type: 
  Country: None (occurrence: None)
  Receive Date: 20070214
  Receipt Date: 20070214
  Transmission Date: 20070707
  Serious: Yes (Hospitalization)
  Sender: FDA-Public Use
  Company Number: None

PATIENT
  Age: 74 Year
  Sex: Male
  Weight: 73.8 kg

DRUGS (4)
  1. PROPRANOLOL [Suspect]
     Indication: ANXIETY
     Dosage: 60MG SA P.O. DAILY
     Route: 048
     Dates: start: 20070122, end: 20070126
  2. LISINOPRIL [Concomitant]
  3. HYDROCHLOROTHIAZIDE [Concomitant]
  4. FELODIPINE [Concomitant]

REACTIONS (1)
  - HYPOTENSION [None]
